FAERS Safety Report 5763423-4 (Version None)
Quarter: 2008Q2

REPORT INFORMATION
  Report Type: 
  Country: None (occurrence: None)
  Receive Date: 20080604
  Receipt Date: 20080604
  Transmission Date: 20081010
  Serious: No
  Sender: FDA-Public Use
  Company Number: None

PATIENT
  Age: 57 Year
  Sex: Male
  Weight: 79.3795 kg

DRUGS (7)
  1. TRAMADOL HCL + ACETAMINOPHEN TABLETS, 37.5 MG/325 MG [Suspect]
     Indication: PAIN
     Dosage: 2 TABLETS 4XDAILY
     Dates: start: 20070101
  2. ATIVAN [Concomitant]
  3. LEXAPRO [Concomitant]
  4. CARDURA [Concomitant]
  5. FOLIC ACID [Concomitant]
  6. KLONOPIN [Concomitant]
  7. LYRICA [Concomitant]

REACTIONS (2)
  - DRUG INEFFECTIVE [None]
  - PHARMACEUTICAL PRODUCT COMPLAINT [None]
